FAERS Safety Report 20825185 (Version 1)
Quarter: 2022Q2

REPORT INFORMATION
  Report Type: Spontaneous
  Country: JP (occurrence: JP)
  Receive Date: 20220513
  Receipt Date: 20220513
  Transmission Date: 20220721
  Serious: Yes (Other)
  Sender: FDA-Public Use
  Company Number: JP-BRISTOL-MYERS SQUIBB COMPANY-2022-037230

PATIENT
  Age: 75 Year
  Sex: Male

DRUGS (1)
  1. ABATACEPT [Suspect]
     Active Substance: ABATACEPT
     Indication: Rheumatic disorder
     Route: 058

REACTIONS (3)
  - Pneumonia bacterial [Unknown]
  - Interstitial lung disease [Unknown]
  - Squamous cell carcinoma [Unknown]
